FAERS Safety Report 25357783 (Version 1)
Quarter: 2025Q2

REPORT INFORMATION
  Report Type: Spontaneous
  Country: GE (occurrence: GE)
  Receive Date: 20250526
  Receipt Date: 20250526
  Transmission Date: 20250716
  Serious: Yes (Death, Life-Threatening, Hospitalization)
  Sender: MACLEODS
  Company Number: GE-MACLEODS PHARMA-MAC2025053188

PATIENT

DRUGS (14)
  1. LEVOFLOXACIN [Suspect]
     Active Substance: LEVOFLOXACIN
     Indication: Pneumonia streptococcal
     Route: 065
  2. MOXIFLOXACIN [Suspect]
     Active Substance: MOXIFLOXACIN
     Indication: Pneumonia streptococcal
     Route: 065
  3. CEFTRIAXONE [Suspect]
     Active Substance: CEFTRIAXONE
     Indication: Pneumonia streptococcal
     Route: 065
  4. AZITHROMYCIN [Suspect]
     Active Substance: AZITHROMYCIN
     Indication: Pneumonia streptococcal
     Route: 065
  5. CLINDAMYCIN [Suspect]
     Active Substance: CLINDAMYCIN
     Indication: Pneumonia streptococcal
     Route: 065
  6. TETRACYCLINE [Suspect]
     Active Substance: TETRACYCLINE
     Indication: Pneumonia streptococcal
     Route: 065
  7. PIPERACILLIN SODIUM\TAZOBACTAM SODIUM [Concomitant]
     Active Substance: PIPERACILLIN SODIUM\TAZOBACTAM SODIUM
     Route: 065
  8. IMIPENEM [Concomitant]
     Active Substance: IMIPENEM
     Route: 065
  9. MEROPENEM [Concomitant]
     Active Substance: MEROPENEM
     Route: 065
  10. VANCOMYCIN [Concomitant]
     Active Substance: VANCOMYCIN
     Route: 065
  11. COTRIMOXAZOLE [Concomitant]
     Active Substance: SULFAMETHOXAZOLE\TRIMETHOPRIM
     Route: 065
  12. OXACILLIN [Concomitant]
     Active Substance: OXACILLIN SODIUM
     Route: 065
  13. LINEZOLID [Concomitant]
     Active Substance: LINEZOLID
     Route: 065
  14. TEICOPLANIN [Concomitant]
     Active Substance: TEICOPLANIN
     Route: 065

REACTIONS (6)
  - Multiple organ dysfunction syndrome [Fatal]
  - Septic shock [Fatal]
  - Respiratory failure [Unknown]
  - Condition aggravated [Unknown]
  - Pulmonary hypertension [Unknown]
  - Drug resistance [Unknown]
